FAERS Safety Report 16895711 (Version 1)
Quarter: 2019Q4

REPORT INFORMATION
  Report Type: Spontaneous
  Country: US (occurrence: US)
  Receive Date: 20191007
  Receipt Date: 20191007
  Transmission Date: 20200122
  Serious: Yes (Hospitalization)
  Sender: FDA-Public Use
  Company Number: None

PATIENT
  Age: 36 Year
  Sex: Female

DRUGS (12)
  1. LINZESS CAP 290 MCG [Concomitant]
  2. MUPIROCIN OIN 2% [Concomitant]
  3. TRIAMCINOLONE CRE 0.025% [Concomitant]
  4. DOXYCYL HYC CAP 100 MG [Concomitant]
  5. HYDROZYZ HCL TAB 25 MG [Concomitant]
  6. HUMIRA [Suspect]
     Active Substance: ADALIMUMAB
     Indication: CROHN^S DISEASE
     Dosage: ?          OTHER FREQUENCY:EVERY OTHER WEEK;?
     Route: 058
     Dates: start: 20161128
  7. FLUTICASONE SPR 50 MCG [Concomitant]
  8. CLINDAMYCIN LOT 1% [Concomitant]
  9. BROM/PSE/DM SYP [Concomitant]
     Active Substance: BROMPHENIRAMINE MALEATE\DEXTROMETHORPHAN HYDROBROMIDE\PSEUDOEPHEDRINE HYDROCHLORIDE
  10. SMZ/TMP DS TAB 800-160 [Concomitant]
     Active Substance: SULFAMETHOXAZOLE\TRIMETHOPRIM
  11. IBUPROFEN TAB 800 MG [Concomitant]
  12. CLOBETASOL CRE 0.05% [Concomitant]

REACTIONS (2)
  - Therapy cessation [None]
  - Malaise [None]
